FAERS Safety Report 5312700-X (Version None)
Quarter: 2007Q2

REPORT INFORMATION
  Report Type: 
  Country: None (occurrence: None)
  Receive Date: 20070430
  Receipt Date: 20070425
  Transmission Date: 20071010
  Serious: Yes (Other)
  Sender: FDA-Public Use
  Company Number: 2007UW02644

PATIENT
  Age: 56 Year
  Sex: Female
  Weight: 70.3 kg

DRUGS (6)
  1. ZESTRIL [Suspect]
     Indication: HYPERTENSION
     Route: 048
     Dates: start: 20030101
  2. TRICOR [Concomitant]
  3. WATER PILL [Concomitant]
  4. POTASSIUM ACETATE [Concomitant]
  5. SYNTHROID [Concomitant]
  6. ESTROGENIC SUBSTANCE [Concomitant]
     Route: 062

REACTIONS (3)
  - BLOOD UREA INCREASED [None]
  - IRON DEFICIENCY ANAEMIA [None]
  - MUSCULAR WEAKNESS [None]
